FAERS Safety Report 9197507 (Version 1)
Quarter: 2013Q1

REPORT INFORMATION
  Report Type: Spontaneous
  Country: US (occurrence: US)
  Receive Date: 20130328
  Receipt Date: 20130328
  Transmission Date: 20140127
  Serious: No
  Sender: FDA-Public Use
  Company Number: US-PFIZER INC-2013098006

PATIENT
  Sex: Female

DRUGS (2)
  1. NEURONTIN [Suspect]
     Indication: SPINAL COLUMN STENOSIS
     Dosage: UNK
  2. EXCEDRIN (ASPIRIN/CAFFEINE/PARACETAMOL) [Concomitant]

REACTIONS (1)
  - Drug effect incomplete [Unknown]
